FAERS Safety Report 5427814-3 (Version None)
Quarter: 2007Q3

REPORT INFORMATION
  Report Type: 
  Country: None (occurrence: None)
  Receive Date: 20070828
  Receipt Date: 20070820
  Transmission Date: 20080115
  Serious: Yes (Other)
  Sender: FDA-Public Use
  Company Number: PHNR2007AU01423

PATIENT
  Sex: Male

DRUGS (10)
  1. COMTAN [Suspect]
     Indication: PARKINSON'S DISEASE
     Dosage: 200 MG, QID
     Route: 048
     Dates: start: 20051201
  2. SINEMET [Concomitant]
     Dosage: 100/25 TABLETS X 2 QID
  3. SINEMET [Concomitant]
     Dosage: 250/25 QID
  4. RANITIDINE [Concomitant]
     Dosage: 150 MG, BID
  5. SINEMET CR [Concomitant]
     Dosage: 1 NOCTE
  6. MICARDIS HCT [Concomitant]
     Dosage: 80/12.5MG ONCE DAILY
  7. MOVEX [Concomitant]
     Dosage: 100 MG, QD
  8. NORVASC [Concomitant]
     Dosage: 2.5MG NOCTE
  9. KALMA [Concomitant]
     Dosage: 0.5 - 1 (0.25MG TABLET) TDS PRN
  10. MADOPAR [Concomitant]
     Dosage: 62.5 MG, PRN

REACTIONS (2)
  - CHOKING [None]
  - DYSPHAGIA [None]
